FAERS Safety Report 5166109-2 (Version None)
Quarter: 2006Q4

REPORT INFORMATION
  Report Type: 
  Country: None (occurrence: None)
  Receive Date: 20061129
  Receipt Date: 20061116
  Transmission Date: 20070319
  Serious: Yes (Other)
  Sender: FDA-Public Use
  Company Number: SPV1-2006-01710

PATIENT
  Age: 7 Year
  Sex: Male
  Weight: 28.6 kg

DRUGS (3)
  1. EQUETRO [Suspect]
     Indication: BIPOLAR DISORDER
     Dosage: 200 MG DAILY, ORAL
     Route: 048
     Dates: start: 20061113, end: 20061114
  2. GEODON [Suspect]
     Indication: MANIA
     Dosage: UNK, UNK, UNK
     Dates: start: 20061113, end: 20061114
  3. CONCERTA [Concomitant]

REACTIONS (3)
  - BLINDNESS TRANSIENT [None]
  - EXTRAPYRAMIDAL DISORDER [None]
  - HYPERSENSITIVITY [None]
